FAERS Safety Report 8971488 (Version 1)
Quarter: 2012Q4

REPORT INFORMATION
  Report Type: Report from Study
  Country: SE (occurrence: SE)
  Receive Date: 20121217
  Receipt Date: 20121217
  Transmission Date: 20130627
  Serious: Yes (Hospitalization)
  Sender: FDA-Public Use
  Company Number: SE-PFIZER INC-2012312882

PATIENT
  Age: 62 Year
  Sex: Male
  Weight: 82 kg

DRUGS (39)
  1. METHYLPREDNISOLONE [Suspect]
     Indication: PROPHYLAXIS AGAINST RENAL TRANSPLANT REJECTION
     Dosage: 500 mg, single
     Route: 042
     Dates: start: 20030822
  2. METHYLPREDNISOLONE [Suspect]
     Dosage: 500 mg, 1x/day
     Route: 042
     Dates: start: 20030904, end: 20030907
  3. METHYLPREDNISOLONE [Suspect]
     Dosage: 125 mg, 1x/day
     Route: 042
     Dates: start: 20030912, end: 20030914
  4. METHYLPREDNISOLONE [Suspect]
     Dosage: 500 mg, 1x/day
     Route: 042
     Dates: start: 20031006, end: 20031009
  5. METHYLPREDNISOLONE [Suspect]
     Dosage: 250 mg, 1x/day
     Route: 042
     Dates: start: 20031014, end: 20031015
  6. PREDNISOLONE [Suspect]
     Indication: PROPHYLAXIS AGAINST RENAL TRANSPLANT REJECTION
     Dosage: 7.5 mg, 1x/day
     Route: 048
     Dates: start: 20030823
  7. CICLOSPORIN [Suspect]
     Indication: PROPHYLAXIS AGAINST RENAL TRANSPLANT REJECTION
     Dosage: 150 mg, 1x/day
     Route: 048
     Dates: start: 20030822, end: 20030909
  8. MYCOPHENOLATE MOFETIL [Suspect]
     Indication: PROPHYLAXIS AGAINST RENAL TRANSPLANT REJECTION
     Dosage: 1 g, 2x/day
     Route: 048
     Dates: start: 20030822
  9. MYCOPHENOLATE MOFETIL [Suspect]
     Dosage: 1 g, 2x/day
     Route: 048
     Dates: start: 20030912, end: 20030912
  10. MYCOPHENOLATE MOFETIL [Suspect]
     Indication: PROPHYLAXIS AGAINST RENAL TRANSPLANT REJECTION
     Dosage: 500 mg, 1x/day
     Route: 042
     Dates: start: 20030912, end: 20040127
  11. PREDNISOLONE [Suspect]
     Indication: PROPHYLAXIS AGAINST RENAL TRANSPLANT REJECTION
     Dosage: 100 mg, single
     Route: 042
     Dates: start: 20030822, end: 20030822
  12. TACROLIMUS [Suspect]
     Indication: PROPHYLAXIS AGAINST RENAL TRANSPLANT REJECTION
     Dosage: 0.75 mg, 2x/day
     Route: 048
     Dates: start: 20030908, end: 20040604
  13. FELODIPINE [Concomitant]
     Dosage: 5 mg, 1x/day
     Route: 048
     Dates: start: 20030919
  14. METOPROLOL [Concomitant]
     Dosage: 50 mg, 2x/day
     Route: 048
     Dates: start: 20030827, end: 20030918
  15. SIMVASTATIN [Concomitant]
     Dosage: 20 mg, 1x/day
     Route: 048
  16. FAMOTIDIN [Concomitant]
     Dosage: 20 mg, 1x/day
     Route: 048
     Dates: start: 20030823
  17. NYSTATIN [Concomitant]
     Dosage: 1 ml, 4x/day
     Route: 048
     Dates: start: 20030823
  18. CALCICHEW-D3 [Concomitant]
     Dosage: 1250 mg, 2x/day
     Route: 048
     Dates: start: 20030826
  19. CALCIUM [Concomitant]
     Dosage: 1 g, 2x/day
     Route: 048
     Dates: start: 20030902
  20. PIVAMPICILLIN HYDROCHLORIDE [Concomitant]
     Dosage: 500 mg, 2x/day
     Route: 048
     Dates: start: 20030902, end: 20030918
  21. FUROSEMIDE [Concomitant]
     Dosage: 40 mg, 2x/day
     Route: 048
     Dates: start: 20030908, end: 20030919
  22. ALFUZOSIN HYDROCHLORIDE [Concomitant]
     Dosage: 10 mg, 1x/day
     Route: 048
     Dates: start: 20030916, end: 20030923
  23. CLEMASTINE [Concomitant]
     Dosage: 2 mg, 1x/day
     Route: 042
     Dates: start: 20030912, end: 20030919
  24. OKT-3 [Concomitant]
     Dosage: 2.5 mg, 1x/day
     Route: 042
     Dates: start: 20030912, end: 20030922
  25. ACICLOVIR [Concomitant]
     Dosage: 30 mg, 2x/day
     Route: 048
     Dates: start: 20030826
  26. ACICLOVIR [Concomitant]
     Dosage: 200 mg, 5 times per day
     Route: 048
     Dates: start: 20030922, end: 20031006
  27. INSULIN HUMAN [Concomitant]
     Dosage: 8 IU, 1x/day
     Route: 058
     Dates: start: 20030913, end: 20030914
  28. INSULIN HUMAN [Concomitant]
     Dosage: 4 IU, 1x/day
     Route: 058
     Dates: start: 20030916, end: 20030917
  29. AMLODIPINE [Concomitant]
     Dosage: 5 mg, 1x/day
     Route: 048
     Dates: start: 20031121
  30. EPOETIN [Concomitant]
     Dosage: 10000 IU, weekly
     Route: 058
     Dates: start: 20040217
  31. FRAGMIN [Concomitant]
     Dosage: 7500 IU, 2x/day
     Route: 058
     Dates: start: 20030217, end: 20030922
  32. INSULIN ASPART [Concomitant]
     Dosage: 5 IU, 2x/day
     Route: 058
     Dates: start: 20031018, end: 20031105
  33. METOPROLOL SUCCINATE [Concomitant]
     Dosage: 50 mg, 2x/day
     Route: 048
     Dates: start: 20030827, end: 20030918
  34. METOPROLOL SUCCINATE [Concomitant]
     Dosage: 100 mg, 1x/day
     Route: 048
     Dates: start: 20031121
  35. METOPROLOL SUCCINATE [Concomitant]
     Dosage: 50 mg, 1x/day
     Route: 048
  36. SOTALOL HYDROCHLORIDE [Concomitant]
     Dosage: 40 mg, 2x/day
     Route: 048
     Dates: start: 20030917, end: 20031121
  37. THYMOGLOBULINE [Concomitant]
     Dosage: 100 mg, 1x/day
     Route: 042
     Dates: start: 20031014, end: 20031025
  38. VALGANCICLOVIR HYDROCHLORIDE [Concomitant]
     Dosage: 450 mg, 1x/day
     Route: 048
     Dates: start: 20031027, end: 200401
  39. WARFARIN SODIUM [Concomitant]
     Dosage: UNK, 1x/day
     Route: 048
     Dates: start: 20030918, end: 20031020

REACTIONS (3)
  - Polyomavirus-associated nephropathy [Unknown]
  - Atrial fibrillation [Not Recovered/Not Resolved]
  - Vascular graft [Recovered/Resolved]
